FAERS Safety Report 9942240 (Version 4)
Quarter: 2014Q3

REPORT INFORMATION
  Report Type: Report from Study
  Country: BR (occurrence: BR)
  Receive Date: 20140303
  Receipt Date: 20140915
  Transmission Date: 20150326
  Serious: Yes (Hospitalization, Disabling, Other)
  Sender: FDA-Public Use
  Company Number: PHHY2014BR011919

PATIENT
  Age: 63 Year
  Sex: Male

DRUGS (2)
  1. SIMVASTATIN. [Concomitant]
     Active Substance: SIMVASTATIN
     Indication: DYSLIPIDAEMIA
     Dates: start: 20100830
  2. AMN107 [Suspect]
     Active Substance: NILOTINIB
     Indication: CHRONIC MYELOID LEUKAEMIA
     Dosage: 400 MG, BID
     Route: 048
     Dates: start: 20080301, end: 20140115

REACTIONS (4)
  - Cerebrovascular accident [Recovered/Resolved]
  - Pulse absent [Unknown]
  - Peripheral arterial occlusive disease [Recovering/Resolving]
  - Intermittent claudication [Unknown]

NARRATIVE: CASE EVENT DATE: 20100831
